FAERS Safety Report 9417620 (Version 3)
Quarter: 2013Q3

REPORT INFORMATION
  Report Type: Report from Study
  Country: US (occurrence: US)
  Receive Date: 20130724
  Receipt Date: 20130905
  Transmission Date: 20140515
  Serious: No
  Sender: FDA-Public Use
  Company Number: US-VERTEX PHARMACEUTICALS INC-2013-008210

PATIENT
  Age: 58 Year
  Sex: Male

DRUGS (3)
  1. VX-950 (TELAPREVIR) [Suspect]
     Indication: HEPATITIS C
     Dosage: 750 MG, TID
     Route: 048
     Dates: start: 20130607, end: 20130712
  2. PEGASYS [Suspect]
     Indication: HEPATITIS C
     Dosage: 120 ?G, QW
     Route: 058
     Dates: start: 20130607, end: 20130712
  3. RIBAVIRIN [Suspect]
     Indication: HEPATITIS C
     Dosage: 1000 MG, QD
     Dates: start: 20130607, end: 20130712

REACTIONS (1)
  - Drug ineffective [Not Recovered/Not Resolved]
